FAERS Safety Report 17989091 (Version 1)
Quarter: 2020Q3

REPORT INFORMATION
  Report Type: Spontaneous
  Country: PL (occurrence: PL)
  Receive Date: 20200707
  Receipt Date: 20200707
  Transmission Date: 20201103
  Serious: Yes (Other)
  Sender: FDA-Public Use
  Company Number: PL-ELI_LILLY_AND_COMPANY-PL202007001579

PATIENT
  Sex: Female

DRUGS (2)
  1. ZYPREXA [Suspect]
     Active Substance: OLANZAPINE
     Indication: PRODUCT USED FOR UNKNOWN INDICATION
     Dosage: UNK, UNKNOWN
     Route: 065
  2. TRANXENE [Concomitant]
     Active Substance: CLORAZEPATE DIPOTASSIUM
     Indication: PRODUCT USED FOR UNKNOWN INDICATION

REACTIONS (9)
  - Skin papilloma [Unknown]
  - Drug use disorder [Unknown]
  - Weight increased [Unknown]
  - Blood pressure abnormal [Unknown]
  - Asthenia [Unknown]
  - Skin disorder [Unknown]
  - Fatigue [Unknown]
  - Fluid retention [Unknown]
  - Somnolence [Unknown]

NARRATIVE: CASE EVENT DATE: 2015
